FAERS Safety Report 17236456 (Version 4)
Quarter: 2020Q1

REPORT INFORMATION
  Report Type: Spontaneous
  Country: TW (occurrence: TW)
  Receive Date: 20200106
  Receipt Date: 20200122
  Transmission Date: 20200409
  Serious: Yes (Death, Hospitalization, Other)
  Sender: FDA-Public Use
  Company Number: TW-PFIZER INC-2020002505

PATIENT
  Age: 76 Year
  Sex: Male

DRUGS (7)
  1. LIVALO [Concomitant]
     Active Substance: PITAVASTATIN CALCIUM
     Dosage: 2 MG, QOD
     Route: 048
     Dates: start: 20140310
  2. CORDARONE [Suspect]
     Active Substance: AMIODARONE HYDROCHLORIDE
     Indication: CARDIAC FAILURE CONGESTIVE
     Dosage: 200 MG, QD
     Route: 048
     Dates: start: 20150227
  3. XARELTO [Concomitant]
     Active Substance: RIVAROXABAN
     Dosage: 15 MG, HS
     Route: 048
     Dates: start: 20160113
  4. HARNALIDGE [Concomitant]
     Active Substance: TAMSULOSIN HYDROCHLORIDE
     Dosage: 0.2 MG, HS
     Route: 048
     Dates: start: 20160921
  5. MADOPAR [Concomitant]
     Active Substance: BENSERAZIDE HYDROCHLORIDE\LEVODOPA
     Dosage: UNK
     Dates: start: 20190109
  6. TONE [IMIPRAMINE HYDROCHLORIDE] [Concomitant]
     Dosage: UNK
     Dates: start: 20170823
  7. ZANIDIP [Concomitant]
     Active Substance: LERCANIDIPINE HYDROCHLORIDE
     Dosage: 10 MG, QD
     Route: 048
     Dates: start: 20150905

REACTIONS (11)
  - Ascites [Unknown]
  - Hepatotoxicity [Unknown]
  - Acute respiratory failure [Fatal]
  - Back pain [Not Recovered/Not Resolved]
  - Hepatic cirrhosis [Unknown]
  - Hepatorenal syndrome [Fatal]
  - Coma [Unknown]
  - Gait inability [Unknown]
  - Acute hepatic failure [Fatal]
  - Multiple organ dysfunction syndrome [Unknown]
  - Aphasia [Unknown]

NARRATIVE: CASE EVENT DATE: 20191219
